FAERS Safety Report 5998027-1 (Version None)
Quarter: 2008Q4

REPORT INFORMATION
  Report Type: 
  Country: None (occurrence: None)
  Receive Date: 20081213
  Receipt Date: 20081203
  Transmission Date: 20090506
  Serious: Yes (Hospitalization)
  Sender: FDA-Public Use
  Company Number: US-GENENTECH-273247

PATIENT
  Sex: Female

DRUGS (3)
  1. BEVACIZUMAB [Suspect]
     Indication: BREAST CANCER
     Dosage: 10 MG/KG, Q28D
     Route: 042
     Dates: start: 20071127
  2. VORINOSTAT [Concomitant]
     Indication: BREAST CANCER
     Dosage: 300 MG, BID
     Route: 048
     Dates: start: 20071127
  3. PACLITAXEL [Concomitant]
     Indication: BREAST CANCER
     Dosage: 90 MG/M2, Q28D
     Route: 042
     Dates: start: 20071127

REACTIONS (1)
  - CHEST PAIN [None]
